FAERS Safety Report 8470915-6 (Version None)
Quarter: 2012Q2

REPORT INFORMATION
  Report Type: 
  Country: None (occurrence: None)
  Receive Date: 20120627
  Receipt Date: 20120618
  Transmission Date: 20120825
  Serious: Yes (Other)
  Sender: FDA-Public Use
  Company Number: US-JNJFOC-20120519090

PATIENT
  Sex: Female
  Weight: 78.93 kg

DRUGS (24)
  1. REMICADE [Suspect]
     Route: 042
     Dates: start: 20111006
  2. REMICADE [Suspect]
     Route: 042
     Dates: start: 20111117
  3. REMICADE [Suspect]
     Route: 042
     Dates: start: 20120401
  4. ACETAMINOPHEN [Concomitant]
     Indication: PREMEDICATION
     Route: 048
     Dates: start: 20120522
  5. PREDNISONE TAB [Concomitant]
     Route: 065
     Dates: start: 20060925
  6. HUMIRA [Concomitant]
     Route: 065
     Dates: start: 20120501
  7. REMICADE [Suspect]
     Indication: RHEUMATOID ARTHRITIS
     Route: 042
     Dates: start: 20100824
  8. REMICADE [Suspect]
     Route: 042
     Dates: start: 20091203
  9. REMICADE [Suspect]
     Route: 042
     Dates: start: 20110413
  10. REMICADE [Suspect]
     Route: 042
     Dates: start: 20100630
  11. REMICADE [Suspect]
     Route: 042
     Dates: start: 20100114
  12. REMICADE [Suspect]
     Route: 042
     Dates: start: 20101019
  13. REMICADE [Suspect]
     Route: 042
     Dates: start: 20110705
  14. REMICADE [Suspect]
     Route: 042
     Dates: start: 20120109
  15. REMICADE [Suspect]
     Dosage: DURATION REPORTED ^FOR SOME TIME^
     Route: 042
     Dates: start: 20120522, end: 20120522
  16. REMICADE [Suspect]
     Route: 042
     Dates: start: 20100311
  17. REMICADE [Suspect]
     Route: 042
     Dates: start: 20110119
  18. REMICADE [Suspect]
     Route: 042
     Dates: start: 20110524
  19. REMICADE [Suspect]
     Route: 042
     Dates: start: 20091217
  20. REMICADE [Suspect]
     Route: 042
     Dates: start: 20120201
  21. LORATADINE [Concomitant]
     Indication: PREMEDICATION
     Route: 048
     Dates: start: 20120522
  22. METHOTREXATE [Concomitant]
     Dosage: 2.58 (UNITS UNSPECIFIED)
     Route: 065
  23. FOLIC ACID [Concomitant]
     Dosage: TOTAL DAILY DOSE:1 (UNITS UNSPECIFIED)
     Route: 065
  24. REMICADE [Suspect]
     Route: 042
     Dates: start: 20110824

REACTIONS (5)
  - INFUSION RELATED REACTION [None]
  - URTICARIA [None]
  - RASH [None]
  - BLISTER [None]
  - VISION BLURRED [None]
